FAERS Safety Report 16048947 (Version 4)
Quarter: 2019Q3

REPORT INFORMATION
  Report Type: Spontaneous
  Country: US (occurrence: US)
  Receive Date: 20190307
  Receipt Date: 20190820
  Transmission Date: 20191004
  Serious: Yes (Death, Other)
  Sender: FDA-Public Use
  Company Number: US-ASTRAZENECA-2018SF33744

PATIENT
  Age: 24840 Day
  Sex: Male
  Weight: 59 kg

DRUGS (20)
  1. PROTONIX [Suspect]
     Active Substance: PANTOPRAZOLE SODIUM
     Route: 065
     Dates: start: 20130101, end: 20170101
  2. RESTORIL [Concomitant]
     Active Substance: TEMAZEPAM
  3. PROTONIX [Suspect]
     Active Substance: PANTOPRAZOLE SODIUM
     Indication: ULCER
     Route: 065
     Dates: start: 20140903
  4. LANTUS [Concomitant]
     Active Substance: INSULIN GLARGINE
  5. PRILOSEC [Suspect]
     Active Substance: OMEPRAZOLE MAGNESIUM
     Indication: ULCER
     Dosage: OMEPRAZOLE- 20 MG TWICE DAILY
     Route: 048
     Dates: start: 20140903
  6. PRILOSEC OTC [Suspect]
     Active Substance: OMEPRAZOLE MAGNESIUM
     Route: 048
     Dates: start: 20130101, end: 20170101
  7. PROTONIX [Suspect]
     Active Substance: PANTOPRAZOLE SODIUM
     Indication: ULCER
     Dosage: 40 MG DAILY
     Route: 065
     Dates: start: 20140901, end: 20170110
  8. PRILOSEC [Suspect]
     Active Substance: OMEPRAZOLE MAGNESIUM
     Indication: ULCER
     Route: 048
     Dates: start: 20130101, end: 20170101
  9. PROTONIX [Suspect]
     Active Substance: PANTOPRAZOLE SODIUM
     Indication: ULCER
     Route: 065
     Dates: start: 20130101, end: 20170101
  10. COGENTIN [Concomitant]
     Active Substance: BENZTROPINE MESYLATE
  11. CLONOPIN [Concomitant]
     Active Substance: CLONAZEPAM
  12. PRILOSEC [Suspect]
     Active Substance: OMEPRAZOLE MAGNESIUM
     Indication: ULCER
     Route: 048
     Dates: start: 20150220
  13. PROTONIX [Suspect]
     Active Substance: PANTOPRAZOLE SODIUM
     Route: 065
     Dates: start: 20170523, end: 20170823
  14. PEPCID [Concomitant]
     Active Substance: FAMOTIDINE
  15. PRILOSEC [Suspect]
     Active Substance: OMEPRAZOLE MAGNESIUM
     Indication: ULCER
     Dosage: OMEPRAZOLE- 20 MG TWICE DAILY
     Route: 048
     Dates: start: 20140903, end: 20170531
  16. PRILOSEC [Suspect]
     Active Substance: OMEPRAZOLE MAGNESIUM
     Indication: ULCER
     Dosage: 20 MG DAILY
     Route: 048
     Dates: start: 20141031
  17. PROTONIX [Suspect]
     Active Substance: PANTOPRAZOLE SODIUM
     Indication: ULCER
     Dosage: 40 MG GENERIC
     Route: 065
     Dates: start: 20140901, end: 20170110
  18. HALDOL [Concomitant]
     Active Substance: HALOPERIDOL
  19. TOPROL XL [Concomitant]
     Active Substance: METOPROLOL SUCCINATE
  20. GLIPIZIDE. [Concomitant]
     Active Substance: GLIPIZIDE

REACTIONS (6)
  - Acute kidney injury [Not Recovered/Not Resolved]
  - Pneumonia aspiration [Fatal]
  - Chronic kidney disease [Not Recovered/Not Resolved]
  - Aspiration [Fatal]
  - Renal injury [Unknown]
  - Multiple organ dysfunction syndrome [Fatal]

NARRATIVE: CASE EVENT DATE: 20140901
